FAERS Safety Report 14995138 (Version 1)
Quarter: 2018Q2

REPORT INFORMATION
  Report Type: Spontaneous
  Country: DE (occurrence: DE)
  Receive Date: 20180611
  Receipt Date: 20180611
  Transmission Date: 20180711
  Serious: Yes (Hospitalization)
  Sender: FDA-Public Use
  Company Number: DE-TEVA-2018-DE-904520

PATIENT
  Age: 57 Year
  Sex: Female
  Weight: 40 kg

DRUGS (10)
  1. PYRIDOXIN [Concomitant]
     Active Substance: PYRIDOXINE
     Dosage: 100 | 50 MG / WEEK, ACCORDING TO THE SCHEME
     Route: 058
  2. EISEN [Concomitant]
     Dosage: BY VALUE
     Route: 042
  3. PASPERTIN [Concomitant]
     Dosage: NEED
     Route: 048
  4. COLECALCIFEROL [Concomitant]
     Active Substance: CHOLECALCIFEROL
     Dosage: ACCORDING TO SCHEME
     Route: 048
  5. PREDNISOLONE. [Suspect]
     Active Substance: PREDNISOLONE
     Dosage: 15 MILLIGRAM DAILY;  1-0-0-0
     Route: 048
  6. ADALIMUMAB [Suspect]
     Active Substance: ADALIMUMAB
     Dosage: EVERY 2 WEEKS
     Route: 058
  7. CYANOCOBALAMIN. [Concomitant]
     Active Substance: CYANOCOBALAMIN
     Route: 058
  8. LEVOTHYROXIN [Concomitant]
     Active Substance: LEVOTHYROXINE
     Dosage: 1-0-0-0
     Route: 048
  9. AZATHIOPRINE. [Suspect]
     Active Substance: AZATHIOPRINE
     Dosage: 100 MILLIGRAM DAILY; 1-0-0-0
     Route: 048
  10. PANTOPRAZOLE [Concomitant]
     Active Substance: PANTOPRAZOLE
     Dosage: 1-0-0-0
     Route: 048

REACTIONS (5)
  - Night sweats [Unknown]
  - Weight decreased [Unknown]
  - Febrile infection [Unknown]
  - Pyrexia [Unknown]
  - Upper respiratory tract irritation [Unknown]
